FAERS Safety Report 7525884-X (Version None)
Quarter: 2011Q2

REPORT INFORMATION
  Report Type: 
  Country: None (occurrence: None)
  Receive Date: 20110606
  Receipt Date: 20110530
  Transmission Date: 20111010
  Serious: Yes (Hospitalization)
  Sender: FDA-Public Use
  Company Number: A0930156A

PATIENT
  Age: 70 Year
  Sex: Female

DRUGS (1)
  1. ZOFRAN [Suspect]
     Route: 065

REACTIONS (1)
  - GASTRIC DISORDER [None]
